FAERS Safety Report 24611598 (Version 1)
Quarter: 2024Q4

REPORT INFORMATION
  Report Type: Report from Study
  Country: ES (occurrence: ES)
  Receive Date: 20241113
  Receipt Date: 20241113
  Transmission Date: 20250114
  Serious: Yes (Death, Other)
  Sender: RANBAXY
  Company Number: ES-SUN PHARMACEUTICAL INDUSTRIES LTD-2024R1-478402

PATIENT
  Sex: Male

DRUGS (6)
  1. FOLIC ACID [Suspect]
     Active Substance: FOLIC ACID
     Indication: Product used for unknown indication
     Dosage: UNK
     Route: 065
  2. LEVOTHYROXINE [Suspect]
     Active Substance: LEVOTHYROXINE
     Indication: Product used for unknown indication
     Dosage: UNK
     Route: 065
  3. PROGESTERONE [Suspect]
     Active Substance: PROGESTERONE
     Indication: Product used for unknown indication
     Dosage: UNK
     Route: 065
  4. PYRIDOXINE [Suspect]
     Active Substance: PYRIDOXINE
     Indication: Product used for unknown indication
     Dosage: UNK
     Route: 065
  5. CYANOCOBALAMIN [Suspect]
     Active Substance: CYANOCOBALAMIN
     Indication: Product used for unknown indication
     Dosage: UNK
     Route: 065
  6. THIAMINE [Suspect]
     Active Substance: THIAMINE
     Indication: Product used for unknown indication
     Dosage: UNK
     Route: 065

REACTIONS (18)
  - Hyponatraemia [Fatal]
  - Cardio-respiratory arrest neonatal [Unknown]
  - Encephalopathy neonatal [Unknown]
  - Acute kidney injury [Unknown]
  - Adrenal haemorrhage [Unknown]
  - Pneumonia [Unknown]
  - Generalised tonic-clonic seizure [Unknown]
  - Coagulopathy [Unknown]
  - Metabolic acidosis [Unknown]
  - Hyperglycaemia [Unknown]
  - Skin laceration [Unknown]
  - Hypothermia [Unknown]
  - Gallbladder disorder [Unknown]
  - Congenital hepatomegaly [Unknown]
  - Renal impairment [Unknown]
  - Erythema [Unknown]
  - Umbilical cord haemorrhage [Unknown]
  - Medical device site joint infection [Unknown]
